FAERS Safety Report 24982104 (Version 3)
Quarter: 2025Q3

REPORT INFORMATION
  Report Type: Report from Study
  Country: ZA (occurrence: ZA)
  Receive Date: 20250218
  Receipt Date: 20250805
  Transmission Date: 20251021
  Serious: Yes (Other)
  Sender: NOVARTIS
  Company Number: ZA-002147023-NVSC2025ZA026893

PATIENT
  Age: 61 Year
  Sex: Female

DRUGS (2)
  1. SIPONIMOD [Suspect]
     Active Substance: SIPONIMOD
     Indication: Multiple sclerosis
     Dosage: 2 MG, QD
     Route: 048
     Dates: start: 20221231
  2. SIPONIMOD [Suspect]
     Active Substance: SIPONIMOD
     Indication: Secondary progressive multiple sclerosis

REACTIONS (5)
  - Expanded disability status scale score increased [Not Recovered/Not Resolved]
  - Hypothyroidism [Unknown]
  - Osteoporosis [Unknown]
  - Gait disturbance [Not Recovered/Not Resolved]
  - Procedural pain [Not Recovered/Not Resolved]
